FAERS Safety Report 5614429-7 (Version None)
Quarter: 2008Q1

REPORT INFORMATION
  Report Type: 
  Country: None (occurrence: None)
  Receive Date: 20080130
  Receipt Date: 20080114
  Transmission Date: 20080703
  Serious: Yes (Other)
  Sender: FDA-Public Use
  Company Number: ACO_00417_2007

PATIENT
  Sex: Female
  Weight: 51 kg

DRUGS (12)
  1. TERNELIN (TERNELIN - TIZANIDINE HYDROCHLORIDE) 1 MG [Suspect]
     Indication: MUSCLE RIGIDITY
     Dosage: (DF), (1 MG TID ORAL)
     Route: 048
     Dates: start: 20071030, end: 20071215
  2. TERNELIN (TERNELIN - TIZANIDINE HYDROCHLORIDE) 1 MG [Suspect]
     Indication: PAIN
     Dosage: (DF), (1 MG TID ORAL)
     Route: 048
     Dates: start: 20071030, end: 20071215
  3. TERNELIN (TERNELIN - TIZANIDINE HYDROCHLORIDE) 1 MG [Suspect]
     Indication: MUSCLE RIGIDITY
     Dosage: (DF), (1 MG TID ORAL)
     Route: 048
     Dates: start: 20070101
  4. TERNELIN (TERNELIN - TIZANIDINE HYDROCHLORIDE) 1 MG [Suspect]
     Indication: PAIN
     Dosage: (DF), (1 MG TID ORAL)
     Route: 048
     Dates: start: 20070101
  5. VOGLIBOSE (VOGLIBOSE) [Suspect]
     Indication: DRUG USE FOR UNKNOWN INDICATION
     Dosage: (0.3 MG BID ORAL)
     Route: 048
     Dates: start: 20071207, end: 20071212
  6. YM [Concomitant]
  7. CHOREITOU [Concomitant]
  8. FORSENID /0571901/ [Concomitant]
  9. NEUROTROPIN /01024301/ [Concomitant]
  10. DIOVAN /01319601/ (DIOVAN -VALSARTAN) (NOT SPECIFIED) [Suspect]
     Indication: HYPERTENSION
     Dosage: (40 MG QD ORAL)
     Route: 048
     Dates: start: 20071205, end: 20071217
  11. MAGNESIUM OXIDE [Concomitant]
  12. LOXONIN /00890702/ [Concomitant]

REACTIONS (19)
  - ALANINE AMINOTRANSFERASE INCREASED [None]
  - ANOREXIA [None]
  - ASPARTATE AMINOTRANSFERASE INCREASED [None]
  - BEDRIDDEN [None]
  - BLOOD LACTATE DEHYDROGENASE INCREASED [None]
  - DECREASED APPETITE [None]
  - DIABETES MELLITUS [None]
  - DIARRHOEA [None]
  - DRUG INEFFECTIVE [None]
  - HEPATIC FUNCTION ABNORMAL [None]
  - HYPERTENSION [None]
  - HYPERTONIA [None]
  - ILL-DEFINED DISORDER [None]
  - MUSCLE RIGIDITY [None]
  - NAUSEA [None]
  - NECK PAIN [None]
  - PAIN [None]
  - TENOSYNOVITIS [None]
  - VOMITING [None]
